FAERS Safety Report 9333780 (Version 1)
Quarter: 2013Q2

REPORT INFORMATION
  Report Type: Spontaneous
  Country: US (occurrence: US)
  Receive Date: 20130606
  Receipt Date: 20130606
  Transmission Date: 20140414
  Serious: No
  Sender: FDA-Public Use
  Company Number: US-AMGEN-USASP2012077727

PATIENT
  Age: 78 Year
  Sex: Female
  Weight: 53.97 kg

DRUGS (7)
  1. PROLIA [Suspect]
     Indication: OSTEOPOROSIS POSTMENOPAUSAL
     Dosage: 60 MG, UNK
     Route: 058
     Dates: start: 20121016
  2. NEXIUM                             /01479302/ [Concomitant]
  3. DETROL [Concomitant]
  4. EYE DROPS                          /00256502/ [Concomitant]
  5. ZETA                               /00065701/ [Concomitant]
  6. WELCHOL [Concomitant]
  7. VITAMIN D                          /00107901/ [Concomitant]

REACTIONS (5)
  - Nervousness [Not Recovered/Not Resolved]
  - Feeling jittery [Not Recovered/Not Resolved]
  - Palpitations [Not Recovered/Not Resolved]
  - Extrasystoles [Not Recovered/Not Resolved]
  - Blood thyroid stimulating hormone increased [Unknown]
